FAERS Safety Report 7664760-9 (Version None)
Quarter: 2011Q3

REPORT INFORMATION
  Report Type: 
  Country: None (occurrence: None)
  Receive Date: 20110806
  Receipt Date: 20110125
  Transmission Date: 20111222
  Serious: No
  Sender: FDA-Public Use
  Company Number: US-ABBOTT-11P-163-0701052-00

PATIENT
  Weight: 127.12 kg

DRUGS (21)
  1. NIASPAN [Suspect]
     Dosage: EVERY NIGHT AT BEDTIME
     Route: 048
     Dates: start: 20101201
  2. DOXAZOSIN MESYLATE [Concomitant]
     Indication: BENIGN PROSTATIC HYPERPLASIA
     Dosage: EVERY NIGHT AT BEDTIME
  3. MAGNESIUM [Concomitant]
     Indication: PRODUCT USED FOR UNKNOWN INDICATION
  4. KLONOPIN [Concomitant]
     Indication: SLEEP TERROR
  5. CITRICAL [Concomitant]
     Indication: PRODUCT USED FOR UNKNOWN INDICATION
  6. VITAMIN D [Concomitant]
     Indication: PRODUCT USED FOR UNKNOWN INDICATION
  7. ESTER C [Concomitant]
     Indication: PRODUCT USED FOR UNKNOWN INDICATION
  8. KLONOPIN [Concomitant]
     Indication: ANXIETY
  9. TOPROL-XL [Concomitant]
     Indication: HYPERTENSION
  10. LISINOPRIL [Concomitant]
     Indication: HYPERTENSION
  11. CELEXA [Concomitant]
     Indication: DEPRESSED MOOD
  12. PROTONIX [Concomitant]
     Indication: GASTROOESOPHAGEAL REFLUX DISEASE
  13. ASCORBIC ACID [Concomitant]
     Indication: PRODUCT USED FOR UNKNOWN INDICATION
  14. SELENIUM [Concomitant]
     Indication: PRODUCT USED FOR UNKNOWN INDICATION
     Dosage: EVERY MORNING
  15. UNSPECIFIED BILE ACID BINDING RENIN [Concomitant]
     Indication: PRODUCT USED FOR UNKNOWN INDICATION
  16. PROSCAR [Concomitant]
     Indication: BENIGN PROSTATIC HYPERPLASIA
     Dosage: EVERY MORNING
  17. NIASPAN [Suspect]
     Indication: CORONARY ARTERY DISEASE
     Dosage: EVERY NIGHT AT BEDTIME
     Route: 048
     Dates: start: 20090101
  18. ASPIRIN [Concomitant]
     Indication: CORONARY ARTERY DISEASE
     Dosage: EVERY NIGHT
     Route: 048
  19. CHOLESTYRAMINE [Concomitant]
     Indication: CORONARY ARTERY DISEASE
  20. ZINC [Concomitant]
     Indication: PRODUCT USED FOR UNKNOWN INDICATION
  21. MULTI-VITAMIN [Concomitant]
     Indication: PRODUCT USED FOR UNKNOWN INDICATION

REACTIONS (3)
  - GENERALISED ERYTHEMA [None]
  - SKIN BURNING SENSATION [None]
  - FLUSHING [None]
